FAERS Safety Report 10500560 (Version 1)
Quarter: 2014Q4

REPORT INFORMATION
  Report Type: Spontaneous
  Country: AU (occurrence: AU)
  Receive Date: 20141006
  Receipt Date: 20141006
  Transmission Date: 20150528
  Serious: Yes (Other)
  Sender: FDA-Public Use
  Company Number: AU-BAXTER-2014BAX059758

PATIENT
  Sex: Male

DRUGS (1)
  1. ENDOXAN CYCLOPHOSPHAMIDE 500MG (AS MONOHYDRATE) POWDER FOR INJECTION V [Suspect]
     Active Substance: CYCLOPHOSPHAMIDE
     Indication: ACUTE MYELOID LEUKAEMIA
     Route: 065

REACTIONS (1)
  - Acute myeloid leukaemia recurrent [Unknown]
